FAERS Safety Report 12730057 (Version 1)
Quarter: 2016Q3

REPORT INFORMATION
  Report Type: Spontaneous
  Country: US (occurrence: US)
  Receive Date: 20160909
  Receipt Date: 20160909
  Transmission Date: 20161109
  Serious: No
  Sender: FDA-Public Use
  Company Number: US-ASTRAZENECA-2016SE72497

PATIENT
  Age: 64 Year
  Sex: Female
  Weight: 55.3 kg

DRUGS (6)
  1. LEVOTHYROXINE. [Concomitant]
     Active Substance: LEVOTHYROXINE
     Indication: THYROID DISORDER
     Route: 048
     Dates: start: 20160329
  2. TUDORZA PRESSAIR [Suspect]
     Active Substance: ACLIDINIUM BROMIDE
     Indication: CHRONIC OBSTRUCTIVE PULMONARY DISEASE
     Dosage: 30 METERED DOSE HUD INHALER, 400, 1 PUFF TWICE A DAY
     Route: 055
     Dates: start: 2014
  3. AMLODIPINE [Concomitant]
     Active Substance: AMLODIPINE BESYLATE
     Indication: BLOOD PRESSURE ABNORMAL
     Route: 048
     Dates: start: 2014
  4. PRAVASTATIN. [Concomitant]
     Active Substance: PRAVASTATIN
     Indication: PROPHYLAXIS
     Route: 048
     Dates: start: 2014
  5. METOPROLOL SUCCINATE ER [Suspect]
     Active Substance: METOPROLOL SUCCINATE
     Indication: HEART RATE ABNORMAL
     Dosage: 25 MG, HALF A PILL DAILY
     Route: 048
     Dates: start: 2015
  6. TUDORZA PRESSAIR [Suspect]
     Active Substance: ACLIDINIUM BROMIDE
     Indication: CHRONIC OBSTRUCTIVE PULMONARY DISEASE
     Dosage: 30 METERED DOSE HUD INHALER, 400, 1 PUFF TWICE A DAY
     Route: 055
     Dates: start: 20160616

REACTIONS (10)
  - Vision blurred [Unknown]
  - Dry eye [Unknown]
  - Circumstance or information capable of leading to medication error [Unknown]
  - Heart rate increased [Unknown]
  - Headache [Unknown]
  - Tremor [Unknown]
  - Hyperthyroidism [Unknown]
  - Device malfunction [Unknown]
  - Hypothyroidism [Unknown]
  - Off label use [Unknown]

NARRATIVE: CASE EVENT DATE: 2014
